FAERS Safety Report 26086458 (Version 2)
Quarter: 2025Q4

REPORT INFORMATION
  Report Type: Spontaneous
  Country: EU (occurrence: EU)
  Receive Date: 20251125
  Receipt Date: 20251222
  Transmission Date: 20260117
  Serious: Yes (Death)
  Sender: RECORDATI
  Company Number: EU-RECORDATI RARE DISEASE INC.-2025008392

PATIENT
  Sex: Female

DRUGS (1)
  1. COSMEGEN [Suspect]
     Active Substance: DACTINOMYCIN
     Indication: Product used for unknown indication
     Dosage: UNK
     Dates: start: 2025

REACTIONS (1)
  - Death [Fatal]

NARRATIVE: CASE EVENT DATE: 20250101
